FAERS Safety Report 6642814-3 (Version None)
Quarter: 2010Q1

REPORT INFORMATION
  Report Type: 
  Country: None (occurrence: None)
  Receive Date: 20100319
  Receipt Date: 20100304
  Transmission Date: 20100710
  Serious: Yes (Other)
  Sender: FDA-Public Use
  Company Number: FR-PFIZER INC-2009298568

PATIENT
  Sex: Female
  Weight: 60 kg

DRUGS (2)
  1. ZOLOFT [Suspect]
     Indication: DEPRESSIVE SYMPTOM
     Dosage: 25 MG, 1X/DAY
     Dates: start: 20080101
  2. LITHIUM [Concomitant]
     Dosage: UNK

REACTIONS (3)
  - GYNAECOMASTIA [None]
  - HYPERPROLACTINAEMIA [None]
  - PITUITARY TUMOUR BENIGN [None]
